FAERS Safety Report 15725621 (Version 1)
Quarter: 2018Q4

REPORT INFORMATION
  Report Type: Spontaneous
  Country: US (occurrence: US)
  Receive Date: 20181215
  Receipt Date: 20181215
  Transmission Date: 20190205
  Serious: No
  Sender: FDA-Public Use
  Company Number: US-009507513-1811USA009093

PATIENT
  Sex: Female

DRUGS (1)
  1. NEXPLANON [Suspect]
     Active Substance: ETONOGESTREL
     Dosage: 1 IMPLANT
     Route: 059
     Dates: start: 201808

REACTIONS (4)
  - Device breakage [Unknown]
  - Product quality issue [Unknown]
  - Breast mass [Unknown]
  - Mood altered [Unknown]

NARRATIVE: CASE EVENT DATE: 2018
